FAERS Safety Report 4776372-5 (Version None)
Quarter: 2005Q3

REPORT INFORMATION
  Report Type: 
  Country: None (occurrence: None)
  Receive Date: 20050921
  Receipt Date: 20050906
  Transmission Date: 20060218
  Serious: Yes (Hospitalization)
  Sender: FDA-Public Use
  Company Number: EWC050242880

PATIENT
  Age: 74 Year
  Sex: Female
  Weight: 21.3191 kg

DRUGS (5)
  1. TERIPARATIDE [Suspect]
     Indication: OSTEOPOROSIS
     Dosage: 20 UG DAY
     Dates: start: 20041110, end: 20050220
  2. ATROVASTATINE [Concomitant]
  3. PAROXETINE [Concomitant]
  4. MIANSERIN [Concomitant]
  5. FLURAZEPAM [Concomitant]

REACTIONS (3)
  - CAROTID ARTERY OCCLUSION [None]
  - PERIPHERAL EMBOLISM [None]
  - PERIPHERAL ISCHAEMIA [None]
